FAERS Safety Report 4527016-9 (Version None)
Quarter: 2004Q4

REPORT INFORMATION
  Report Type: 
  Country: None (occurrence: None)
  Receive Date: 20041201
  Receipt Date: 20041004
  Transmission Date: 20050328
  Serious: No
  Sender: FDA-Public Use
  Company Number: MPS1-10288

PATIENT
  Age: 7 Month
  Sex: Male

DRUGS (1)
  1. ALDURAZYME [Suspect]
     Indication: MUCOPOLYSACCHARIDOSIS I
     Dosage: 2.9 MG QWK IV
     Route: 042

REACTIONS (1)
  - CATHETER RELATED COMPLICATION [None]
